FAERS Safety Report 6490326-2 (Version None)
Quarter: 2009Q4

REPORT INFORMATION
  Report Type: 
  Country: None (occurrence: None)
  Receive Date: 20091211
  Receipt Date: 20091110
  Transmission Date: 20100525
  Serious: No
  Sender: FDA-Public Use
  Company Number: US-BAYER-200928787NA

PATIENT
  Age: 22 Year
  Sex: Female
  Weight: 49 kg

DRUGS (1)
  1. YAZ [Suspect]
     Indication: CONTRACEPTION
     Dates: start: 20090601

REACTIONS (1)
  - VULVOVAGINAL MYCOTIC INFECTION [None]
